FAERS Safety Report 4688206-8 (Version None)
Quarter: 2005Q2

REPORT INFORMATION
  Report Type: 
  Country: None (occurrence: None)
  Receive Date: 20050609
  Receipt Date: 20050524
  Transmission Date: 20051028
  Serious: Yes (Other)
  Sender: FDA-Public Use
  Company Number: ACO_0162_2005

PATIENT
  Age: 40 Year
  Sex: Female

DRUGS (7)
  1. ZANAFLEX [Suspect]
     Indication: PAIN
     Dosage: DF PO
     Route: 048
     Dates: start: 20040601
  2. EFFEXOR XR [Suspect]
     Indication: DEPRESSION
     Dosage: 37.5 MG ONCE PO
     Route: 048
     Dates: start: 20050518, end: 20050518
  3. LEXAPRO [Concomitant]
  4. DURAGESIC-100 [Concomitant]
  5. ZONEGRAN [Concomitant]
  6. CLONIDINE [Concomitant]
  7. ULTRAM [Concomitant]

REACTIONS (2)
  - DEPRESSION [None]
  - PARANOIA [None]
